FAERS Safety Report 24340546 (Version 3)
Quarter: 2024Q4

REPORT INFORMATION
  Report Type: Spontaneous
  Country: AU (occurrence: AU)
  Receive Date: 20240919
  Receipt Date: 20241216
  Transmission Date: 20250114
  Serious: Yes (Other)
  Sender: SANOFI AVENTIS
  Company Number: AU-SA-2024SA271024

PATIENT
  Age: 36 Year
  Sex: Female

DRUGS (1)
  1. DUPIXENT [Suspect]
     Active Substance: DUPILUMAB
     Indication: Dermatitis atopic
     Dosage: UNK
     Route: 065
     Dates: start: 202206

REACTIONS (2)
  - Ocular surface disease [Unknown]
  - Conjunctivitis [Unknown]
